FAERS Safety Report 25762979 (Version 1)
Quarter: 2025Q3

REPORT INFORMATION
  Report Type: Report from Study
  Country: US (occurrence: US)
  Receive Date: 20250904
  Receipt Date: 20250904
  Transmission Date: 20251021
  Serious: No
  Sender: JOHNSON AND JOHNSON
  Company Number: US-JNJFOC-20250822296

PATIENT
  Age: 40 Year
  Sex: Female
  Weight: 88.0 kg

DRUGS (2)
  1. STELARA [Suspect]
     Active Substance: USTEKINUMAB
     Indication: Psoriasis
     Dosage: STRENGTH: 45.00 MG / 0.50 ML
     Route: 058
     Dates: start: 20250812
  2. STELARA [Suspect]
     Active Substance: USTEKINUMAB
     Dosage: STRENGTH: 45.00 MG / 0.50 ML
     Route: 058
     Dates: start: 20220305

REACTIONS (2)
  - Product dose omission issue [Unknown]
  - Device malfunction [Unknown]
